FAERS Safety Report 5701713-1 (Version None)
Quarter: 2008Q2

REPORT INFORMATION
  Report Type: 
  Country: None (occurrence: None)
  Receive Date: 20080409
  Receipt Date: 20080409
  Transmission Date: 20081010
  Serious: No
  Sender: FDA-Public Use
  Company Number: None

PATIENT
  Age: 56 Year
  Sex: Male
  Weight: 85.7298 kg

DRUGS (2)
  1. CHANTIX [Suspect]
     Indication: SMOKING CESSATION THERAPY
     Dosage: 53 TABLETS FOR 30 DAYS USE
     Dates: start: 20070905, end: 20071006
  2. CHANTIX [Suspect]
     Dosage: 56 TABLETS FOR 30 DAY USE
     Dates: start: 20071007, end: 20071101

REACTIONS (12)
  - ABDOMINAL DISTENSION [None]
  - ARTHRALGIA [None]
  - BACK PAIN [None]
  - DEPRESSION [None]
  - FATIGUE [None]
  - GENERAL PHYSICAL HEALTH DETERIORATION [None]
  - HYPOTHYROIDISM [None]
  - INSOMNIA [None]
  - MOOD SWINGS [None]
  - PYREXIA [None]
  - THYROID NEOPLASM [None]
  - WEIGHT INCREASED [None]
